FAERS Safety Report 7820843-1 (Version None)
Quarter: 2011Q4

REPORT INFORMATION
  Report Type: 
  Country: None (occurrence: None)
  Receive Date: 20111018
  Receipt Date: 20111004
  Transmission Date: 20120403
  Serious: Yes (Other)
  Sender: FDA-Public Use
  Company Number: DE-CELGENEUS-062-21880-11051299

PATIENT
  Weight: 85 kg

DRUGS (1)
  1. REVLIMID [Suspect]
     Route: 048

REACTIONS (6)
  - PRURITUS [None]
  - GASTRITIS [None]
  - CONTUSION [None]
  - OEDEMA PERIPHERAL [None]
  - PULMONARY FIBROSIS [None]
  - WEIGHT INCREASED [None]
